FAERS Safety Report 9780700 (Version 1)
Quarter: 2013Q4

REPORT INFORMATION
  Report Type: Spontaneous
  Country: GB (occurrence: GB)
  Receive Date: 20131224
  Receipt Date: 20131224
  Transmission Date: 20140711
  Serious: Yes (Death)
  Sender: FDA-Public Use
  Company Number: GB-JNJFOC-20131214332

PATIENT
  Sex: 0

DRUGS (3)
  1. INFLIXIMAB, RECOMBINANT [Suspect]
     Indication: RHEUMATOID ARTHRITIS
     Dosage: AT 0, 2, 6, 14 AND 22 WEEKS
     Route: 042
  2. METHOTREXATE [Suspect]
     Indication: RHEUMATOID ARTHRITIS
     Dosage: INCREASED TO 20 MG OR MAXIMUM TOLERATED DOSE BY WEEK 6
     Route: 065
  3. FOLIC ACID [Concomitant]
     Dosage: DAILY EXCEPT THE DAY OF METHOTREXATE
     Route: 065

REACTIONS (1)
  - Pulmonary embolism [Fatal]
